FAERS Safety Report 7799235-X (Version None)
Quarter: 2011Q4

REPORT INFORMATION
  Report Type: 
  Country: None (occurrence: None)
  Receive Date: 20111004
  Receipt Date: 20111004
  Transmission Date: 20120403
  Serious: No
  Sender: FDA-Public Use
  Company Number: None

PATIENT
  Age: 63 Year
  Sex: Female

DRUGS (1)
  1. MOMETASONE FUROATE [Suspect]

REACTIONS (3)
  - BACTERIAL INFECTION [None]
  - PRODUCT PHYSICAL ISSUE [None]
  - PRODUCT SUBSTITUTION ISSUE [None]
